FAERS Safety Report 20987117 (Version 1)
Quarter: 2022Q2

REPORT INFORMATION
  Report Type: Report from Study
  Country: US (occurrence: US)
  Receive Date: 20220621
  Receipt Date: 20220621
  Transmission Date: 20220721
  Serious: Yes (Other)
  Sender: FDA-Public Use
  Company Number: US-JAZZ-2022-US-021076

PATIENT
  Sex: Female

DRUGS (9)
  1. XYREM [Suspect]
     Active Substance: SODIUM OXYBATE
     Indication: Narcolepsy
     Route: 048
  2. PYRIDOXINE [Concomitant]
     Active Substance: PYRIDOXINE
     Dosage: 0010
     Dates: start: 20150121
  3. IBUPROFEN [Concomitant]
     Active Substance: IBUPROFEN
     Dosage: 0000
     Dates: start: 20150219
  4. NADOLOL [Concomitant]
     Active Substance: NADOLOL
     Dosage: 0000
     Dates: start: 20181203
  5. ASPIRIN [Concomitant]
     Active Substance: ASPIRIN
     Dosage: 0000
     Dates: start: 20190501
  6. KEPPRA [Concomitant]
     Active Substance: LEVETIRACETAM
     Dosage: 0000
     Dates: start: 20210525
  7. KLONOPIN [Concomitant]
     Active Substance: CLONAZEPAM
     Dosage: 0000
     Dates: start: 20210101
  8. BUSPIRONE HCL [Concomitant]
     Active Substance: BUSPIRONE HYDROCHLORIDE
     Dosage: 0000
     Dates: start: 20210524
  9. PRIMA-CAL [Concomitant]
     Dosage: 0000
     Dates: start: 20210301

REACTIONS (1)
  - Deafness unilateral [Unknown]
